FAERS Safety Report 18053617 (Version 3)
Quarter: 2020Q4

REPORT INFORMATION
  Report Type: Spontaneous
  Country: US (occurrence: US)
  Receive Date: 20200722
  Receipt Date: 20201213
  Transmission Date: 20210113
  Serious: Yes (Death, Other)
  Sender: FDA-Public Use
  Company Number: US-TEVA-2020-US-1804505

PATIENT
  Age: 57 Year
  Sex: Female

DRUGS (10)
  1. VALSARTAN/HYDROCHLOROTHIAZIDE MYLAN [Suspect]
     Active Substance: HYDROCHLOROTHIAZIDE\VALSARTAN
     Dosage: DOSAGE: 320MG/12.5MG
     Route: 065
     Dates: start: 20170227, end: 20170528
  2. VALSARTAN SOLCO [Suspect]
     Active Substance: VALSARTAN
     Indication: HYPERTENSION
     Dosage: DOSAGE: 160MG
     Route: 065
     Dates: start: 20161006, end: 20161207
  3. VALSARTAN/HYDROCHLOROTHIAZIDE MYLAN [Suspect]
     Active Substance: HYDROCHLOROTHIAZIDE\VALSARTAN
     Indication: HYPERTENSION
     Dosage: DOSAGE: 160MG/12.5MG
     Route: 065
     Dates: start: 20131117, end: 20131228
  4. DIOVAN [Suspect]
     Active Substance: VALSARTAN
     Indication: HYPERTENSION
     Dosage: DOSAGE: 80MG/DAILY
     Dates: start: 20090323, end: 20100730
  5. EXFORGE HCT [Concomitant]
     Active Substance: AMLODIPINE BESYLATE\HYDROCHLOROTHIAZIDE\VALSARTAN
     Indication: HYPERTENSION
     Dosage: DOSAGE: 160/25MG/DAILY
     Dates: start: 20100730, end: 20130316
  6. VALSARTAN/HYDROCHLOROTHIAZIDE ACTAVIS [Suspect]
     Active Substance: HYDROCHLOROTHIAZIDE\VALSARTAN
     Indication: HYPERTENSION
     Dosage: DOSAGE: 320MG/12.5MG
     Route: 065
     Dates: start: 20161207, end: 20170129
  7. VALSARTAN/HYDROCHLOROTHIAZIDE MYLAN [Suspect]
     Active Substance: HYDROCHLOROTHIAZIDE\VALSARTAN
     Dosage: DOSAGE: 160MG/12.5MG
     Route: 065
     Dates: start: 20150316, end: 20150714
  8. VALSARTAN/HYDROCHLOROTHIAZIDE ACTAVIS [Suspect]
     Active Substance: HYDROCHLOROTHIAZIDE\VALSARTAN
     Dosage: DOSAGE: 320MG/12.5MG
     Route: 065
     Dates: start: 20171010, end: 20171209
  9. METFORMIN [Concomitant]
     Active Substance: METFORMIN HYDROCHLORIDE
     Indication: DIABETES MELLITUS
     Dosage: DOSAGE: 100MG/DAILY
     Dates: start: 20090409, end: 2018
  10. VALSARTAN/HYDROCHLOROTHIAZIDE MYLAN [Suspect]
     Active Substance: HYDROCHLOROTHIAZIDE\VALSARTAN
     Dosage: DOSAGE: 160MG/12.5MG
     Route: 065
     Dates: start: 20140326, end: 20140706

REACTIONS (3)
  - Metastases to lung [Fatal]
  - Metastases to liver [Fatal]
  - Colorectal cancer [Fatal]
